FAERS Safety Report 13108630 (Version 1)
Quarter: 2017Q1

REPORT INFORMATION
  Report Type: Spontaneous
  Country: US (occurrence: US)
  Receive Date: 20170111
  Receipt Date: 20170111
  Transmission Date: 20170428
  Serious: Yes (Other)
  Sender: FDA-Public Use
  Company Number: None

PATIENT
  Sex: Female

DRUGS (1)
  1. LOVENOX [Suspect]
     Active Substance: ENOXAPARIN SODIUM
     Route: 058

REACTIONS (3)
  - Accidental exposure to product [None]
  - Device breakage [None]
  - Injury associated with device [None]

NARRATIVE: CASE EVENT DATE: 20170109
